FAERS Safety Report 7573758-0 (Version None)
Quarter: 2011Q2

REPORT INFORMATION
  Report Type: 
  Country: None (occurrence: None)
  Receive Date: 20110627
  Receipt Date: 20110619
  Transmission Date: 20111010
  Serious: Yes (Hospitalization)
  Sender: FDA-Public Use
  Company Number: IT-ROCHE-784082

PATIENT
  Age: 56 Year
  Sex: Female

DRUGS (1)
  1. HERCEPTIN [Suspect]
     Dosage: DOSE, ROUTE AND FREQUENCY WAS NOT REPORTED.
     Route: 065

REACTIONS (1)
  - DRUG INTOLERANCE [None]
